FAERS Safety Report 9690212 (Version 1)
Quarter: 2013Q4

REPORT INFORMATION
  Report Type: Spontaneous
  Country: US (occurrence: US)
  Receive Date: 20131115
  Receipt Date: 20131115
  Transmission Date: 20140711
  Serious: Yes (Other)
  Sender: FDA-Public Use
  Company Number: US-JNJFOC-20131105433

PATIENT
  Age: 68 Year
  Sex: Female
  Weight: 113.4 kg

DRUGS (14)
  1. REMICADE [Suspect]
     Indication: COLITIS ULCERATIVE
     Route: 042
  2. REMICADE [Suspect]
     Indication: COLITIS ULCERATIVE
     Route: 042
     Dates: start: 201310
  3. LEXAPRO [Concomitant]
     Indication: NEUROPATHY PERIPHERAL
     Route: 048
     Dates: start: 2012
  4. IMIPRAMINE [Concomitant]
     Indication: SLEEP DISORDER
     Route: 048
     Dates: start: 2003
  5. LOTREL [Concomitant]
     Indication: BLOOD PRESSURE
     Route: 048
  6. ACCOLATE [Concomitant]
     Indication: ASTHMA
     Route: 048
  7. ENLYTE [Concomitant]
     Indication: DEPRESSION
     Route: 048
     Dates: start: 2013
  8. VITAMIN D [Concomitant]
     Dosage: DOSE: 50,000 U
     Route: 048
  9. DOXEPIN [Concomitant]
     Indication: PRURITUS
     Dosage: AT NIGHT
     Route: 048
  10. TRAZODONE [Concomitant]
     Dosage: AT NIGHT
     Route: 048
  11. SYNTHROID [Concomitant]
     Indication: THYROID DISORDER
     Dosage: 6 DAYS A WEEK
     Route: 048
  12. SYNTHROID [Concomitant]
     Indication: THYROID DISORDER
     Dosage: SUNDAYS
     Route: 048
  13. FOLIC ACID [Concomitant]
     Route: 048
  14. ATIVAN [Concomitant]
     Indication: ANXIETY
     Route: 048

REACTIONS (3)
  - Cholelithiasis [Not Recovered/Not Resolved]
  - Pruritus [Not Recovered/Not Resolved]
  - Abdominal pain upper [Not Recovered/Not Resolved]
